FAERS Safety Report 16469279 (Version 1)
Quarter: 2019Q2

REPORT INFORMATION
  Report Type: Spontaneous
  Country: US (occurrence: US)
  Receive Date: 20190624
  Receipt Date: 20190624
  Transmission Date: 20190711
  Serious: No
  Sender: FDA-Public Use
  Company Number: US-SA-2019SA162422

PATIENT
  Sex: Female

DRUGS (1)
  1. AMARYL [Suspect]
     Active Substance: GLIMEPIRIDE
     Indication: TYPE 2 DIABETES MELLITUS
     Dosage: 4 MG, BID
     Route: 065

REACTIONS (11)
  - Chest discomfort [Unknown]
  - Throat tightness [Unknown]
  - Asthenia [Unknown]
  - Balance disorder [Unknown]
  - Confusional state [Unknown]
  - Blood glucose increased [Unknown]
  - Fatigue [Unknown]
  - Glycosylated haemoglobin increased [Unknown]
  - Blood glucose decreased [Unknown]
  - Dysphonia [Unknown]
  - Dizziness [Unknown]
